FAERS Safety Report 5689456-4 (Version None)
Quarter: 2008Q1

REPORT INFORMATION
  Report Type: 
  Country: None (occurrence: None)
  Receive Date: 20080331
  Receipt Date: 20080319
  Transmission Date: 20080703
  Serious: Yes (Hospitalization)
  Sender: FDA-Public Use
  Company Number: US-PFIZER INC-2008025113

PATIENT
  Sex: Male
  Weight: 75.6 kg

DRUGS (13)
  1. SUTENT [Suspect]
     Indication: THYROID CANCER
     Route: 048
  2. ALBUTEROL [Concomitant]
     Route: 055
  3. AMBIEN [Concomitant]
     Route: 048
  4. WELLBUTRIN [Concomitant]
     Dosage: FREQ:DAILY
     Route: 048
  5. CARISOPRODOL [Concomitant]
     Dosage: FREQ:DAILY
     Route: 048
  6. COLACE [Concomitant]
     Dosage: FREQ:DAILY
     Route: 048
  7. LACTULOSE [Concomitant]
     Dosage: FREQ:PRN
     Route: 048
  8. EFFEXOR [Concomitant]
     Dosage: FREQ:DAILY
     Route: 048
  9. NEXIUM [Concomitant]
     Dosage: FREQ:DAILY
     Route: 048
  10. VALSARTAN [Concomitant]
     Dosage: FREQ:DAILY
     Route: 048
  11. VARDENAFIL [Concomitant]
     Dosage: FREQ:PRN
     Route: 048
  12. LEVOTHYROXINE SODIUM [Concomitant]
     Dosage: FREQ:DAILY
     Route: 048
  13. HYDROCODONE BITARTRATE [Concomitant]
     Dosage: FREQ:PRN
     Route: 048

REACTIONS (1)
  - PLEURAL EFFUSION [None]
